FAERS Safety Report 5814779-5 (Version None)
Quarter: 2008Q3

REPORT INFORMATION
  Report Type: 
  Country: None (occurrence: None)
  Receive Date: 20080718
  Receipt Date: 20080708
  Transmission Date: 20090109
  Serious: Yes (Hospitalization, Other)
  Sender: FDA-Public Use
  Company Number: JP-ABBOTT-08P-087-0447579-00

PATIENT
  Age: 11 Year
  Sex: Female

DRUGS (5)
  1. CEFDINIR FINE GRANULE [Suspect]
     Indication: DRUG USE FOR UNKNOWN INDICATION
     Route: 048
     Dates: start: 20080313, end: 20080314
  2. PROCATEROL HCL [Suspect]
     Indication: UPPER RESPIRATORY TRACT INFLAMMATION
     Route: 048
     Dates: start: 20080313, end: 20080314
  3. CYPROHEPTADINE HYDROCHLORIDE [Suspect]
     Indication: UPPER RESPIRATORY TRACT INFLAMMATION
     Route: 048
     Dates: start: 20080313, end: 20080314
  4. BROMHEXINE HYDROCHLORIDE [Suspect]
     Indication: UPPER RESPIRATORY TRACT INFLAMMATION
     Route: 048
     Dates: start: 20080313, end: 20080314
  5. BECLOMETHASONE DIPROPIONATE [Suspect]
     Indication: UPPER RESPIRATORY TRACT INFLAMMATION
     Route: 055
     Dates: start: 20080313, end: 20080314

REACTIONS (8)
  - ASTHMA [None]
  - CONJUNCTIVAL HYPERAEMIA [None]
  - DYSURIA [None]
  - ERYTHEMA [None]
  - ORAL MUCOSA EROSION [None]
  - PHARYNGEAL ERYTHEMA [None]
  - STEVENS-JOHNSON SYNDROME [None]
  - STOMATITIS [None]
